FAERS Safety Report 9871686 (Version 1)
Quarter: 2014Q1

REPORT INFORMATION
  Report Type: Spontaneous
  Country: US (occurrence: US)
  Receive Date: 20140205
  Receipt Date: 20140205
  Transmission Date: 20141002
  Serious: No
  Sender: FDA-Public Use
  Company Number: US-AMGEN-USASP2013008322

PATIENT
  Age: 61 Year
  Sex: Female

DRUGS (2)
  1. NEULASTA [Suspect]
     Indication: PRODUCT USED FOR UNKNOWN INDICATION
     Dosage: UNK
     Dates: start: 20130128
  2. CHEMOTHERAPEUTICS [Concomitant]
     Indication: CERVIX CARCINOMA
     Dosage: UNK

REACTIONS (1)
  - Bone pain [Unknown]
